FAERS Safety Report 17367473 (Version 2)
Quarter: 2020Q1

REPORT INFORMATION
  Report Type: Not Available
  Country: US (occurrence: US)
  Receive Date: 20200204
  Receipt Date: 20200319
  Transmission Date: 20200409
  Serious: No
  Sender: FDA-Public Use
  Company Number: US-NEUROCRINE BIOSCIENCES INC.-2020NBI00261

PATIENT
  Age: 66 Year
  Sex: Female

DRUGS (25)
  1. XYLOCAINE [Concomitant]
     Active Substance: LIDOCAINE HYDROCHLORIDE
     Indication: PAIN
     Dosage: 5% APPLICATION TO AFFECTED AREA 2 TIMES DAILY AS NEEDED FOR PAIN
     Route: 061
  2. AMBIEN [Concomitant]
     Active Substance: ZOLPIDEM TARTRATE
     Route: 048
     Dates: start: 20200107
  3. BIOTIN [Concomitant]
     Active Substance: BIOTIN
     Route: 048
  4. FERROUS SULFATE. [Concomitant]
     Active Substance: FERROUS SULFATE
     Route: 048
  5. IMODIUM [Concomitant]
     Active Substance: LOPERAMIDE HYDROCHLORIDE
     Route: 048
  6. MELATONIN [Concomitant]
     Active Substance: MELATONIN
     Dosage: AT BEDTIME
     Route: 048
  7. ECOTRIN [Concomitant]
     Active Substance: ASPIRIN
     Route: 048
  8. NUPLAZID [Concomitant]
     Active Substance: PIMAVANSERIN TARTRATE
  9. PROTONIX [Concomitant]
     Active Substance: PANTOPRAZOLE SODIUM
     Route: 048
     Dates: start: 20191015
  10. INGREZZA [Suspect]
     Active Substance: VALBENAZINE
     Indication: TARDIVE DYSKINESIA
     Route: 048
     Dates: start: 20200102
  11. UREA NAIL GEL [Concomitant]
     Dosage: 45%
  12. K-DUR [Concomitant]
     Active Substance: POTASSIUM CHLORIDE
     Route: 048
     Dates: start: 20190221
  13. ULTRAM [Concomitant]
     Active Substance: TRAMADOL HYDROCHLORIDE
     Dosage: 50-100 MG
     Route: 048
     Dates: start: 20190810
  14. NORVASC [Concomitant]
     Active Substance: AMLODIPINE BESYLATE
     Route: 048
     Dates: start: 20191015
  15. VYVANSE [Concomitant]
     Active Substance: LISDEXAMFETAMINE DIMESYLATE
     Route: 048
  16. VITAMIN B COMPLEX [Concomitant]
     Active Substance: CYANOCOBALAMIN\DEXPANTHENOL\NIACINAMIDE\PYRIDOXINE HYDROCHLORIDE\RIBOFLAVIN 5^-PHOSPHATE SODIUM\THIAMINE HYDROCHLORIDE\VITAMIN B COMPLEX
     Route: 048
  17. TYLENOL WITH CODEINE [Concomitant]
     Active Substance: ACETAMINOPHEN\CODEINE PHOSPHATE
     Dosage: 300-60 MG AS REQUIRED
     Route: 048
  18. CELEBREX [Concomitant]
     Active Substance: CELECOXIB
     Route: 048
  19. KLONOPIN [Concomitant]
     Active Substance: CLONAZEPAM
     Route: 048
     Dates: start: 20190905
  20. TOPICORT [Concomitant]
     Active Substance: DESOXIMETASONE
     Dosage: 0.25 %
     Dates: start: 20170911
  21. RAZADYNE [Concomitant]
     Active Substance: GALANTAMINE HYDROBROMIDE
     Route: 048
     Dates: start: 20190916
  22. MAG-OX [Concomitant]
     Active Substance: MAGNESIUM OXIDE
     Route: 048
  23. LIALDA [Concomitant]
     Active Substance: MESALAMINE
     Route: 048
     Dates: start: 20191220
  24. TRILEPTAL [Concomitant]
     Active Substance: OXCARBAZEPINE
     Route: 048
  25. MIRAPEX [Concomitant]
     Active Substance: PRAMIPEXOLE DIHYDROCHLORIDE
     Dosage: AT BEDTIME
     Route: 048
     Dates: start: 20191014

REACTIONS (2)
  - Dysarthria [Recovered/Resolved]
  - Drooling [Recovered/Resolved]

NARRATIVE: CASE EVENT DATE: 20200110
